FAERS Safety Report 7717399-0 (Version None)
Quarter: 2011Q3

REPORT INFORMATION
  Report Type: 
  Country: None (occurrence: None)
  Receive Date: 20110830
  Receipt Date: 20110824
  Transmission Date: 20111222
  Serious: Yes (Death, Other)
  Sender: FDA-Public Use
  Company Number: ES-CUBIST-2011S1000552

PATIENT
  Age: 51 Year
  Sex: Female

DRUGS (5)
  1. CUBICIN [Suspect]
     Indication: ENDOCARDITIS
     Route: 042
  2. ACYCLOVIR [Concomitant]
     Route: 042
  3. AMPICILLIN SODIUM [Concomitant]
     Route: 042
  4. CEFTRIAXONE [Concomitant]
     Indication: PRODUCT USED FOR UNKNOWN INDICATION
     Route: 042
  5. GENTAMICIN [Concomitant]
     Indication: ENDOCARDITIS
     Route: 042

REACTIONS (2)
  - MULTI-ORGAN FAILURE [None]
  - ANTIPHOSPHOLIPID SYNDROME [None]
